FAERS Safety Report 16641868 (Version 2)
Quarter: 2019Q3

REPORT INFORMATION
  Report Type: Report from Study
  Country: IT (occurrence: IT)
  Receive Date: 20190729
  Receipt Date: 20190830
  Transmission Date: 20191004
  Serious: Yes (Other)
  Sender: FDA-Public Use
  Company Number: IT-PFIZER INC-2019319146

PATIENT
  Age: 39 Year
  Sex: Female

DRUGS (2)
  1. SERPAX [Suspect]
     Active Substance: OXAZEPAM
     Dosage: 16 DF, SINGLE
     Route: 048
     Dates: start: 20190507, end: 20190507
  2. TAVOR (LORAZEPAM) [Suspect]
     Active Substance: LORAZEPAM
     Dosage: 22.5 MG, SINGLE
     Route: 048
     Dates: start: 20190507, end: 20190507

REACTIONS (5)
  - Hypotension [Recovering/Resolving]
  - Bradyphrenia [Recovering/Resolving]
  - Intentional overdose [Recovering/Resolving]
  - Movement disorder [Recovering/Resolving]
  - Drug abuse [Recovering/Resolving]

NARRATIVE: CASE EVENT DATE: 20190507
